FAERS Safety Report 7610102-4 (Version None)
Quarter: 2011Q3

REPORT INFORMATION
  Report Type: 
  Country: None (occurrence: None)
  Receive Date: 20110715
  Receipt Date: 20110706
  Transmission Date: 20111222
  Serious: Yes (Hospitalization)
  Sender: FDA-Public Use
  Company Number: US-BIOGENIDEC-2011BI025233

PATIENT
  Age: 47 Year
  Sex: Female

DRUGS (1)
  1. AVONEX [Suspect]
     Indication: MULTIPLE SCLEROSIS
     Route: 030
     Dates: end: 20110315

REACTIONS (7)
  - DEPRESSION [None]
  - BLADDER MALPOSITION ACQUIRED [None]
  - FALL [None]
  - HYPOAESTHESIA [None]
  - CONTUSION [None]
  - LACERATION [None]
  - PARAESTHESIA [None]
